FAERS Safety Report 5147694-3 (Version None)
Quarter: 2006Q4

REPORT INFORMATION
  Report Type: 
  Country: None (occurrence: None)
  Receive Date: 20061110
  Receipt Date: 20060823
  Transmission Date: 20070319
  Serious: Yes (Death, Life-Threatening, Hospitalization)
  Sender: FDA-Public Use
  Company Number: BE-AMGEN-UK191024

PATIENT
  Sex: Male

DRUGS (14)
  1. PANITUMUMAB [Suspect]
     Route: 042
     Dates: start: 20060411
  2. RADIATION THERAPY [Suspect]
     Dates: start: 20060411
  3. CARBOPLATIN [Suspect]
     Dates: start: 20060411, end: 20060516
  4. DOCETAXEL [Concomitant]
     Dates: start: 20051227, end: 20060305
  5. CISPLATIN [Concomitant]
     Dates: start: 20051227, end: 20060305
  6. FLUOROURACIL [Concomitant]
     Dates: start: 20051227, end: 20060305
  7. DURAGESIC-100 [Concomitant]
     Route: 062
     Dates: start: 20060818
  8. NADROPARIN CALCIUM [Concomitant]
     Route: 058
     Dates: start: 20060822
  9. XANAX [Concomitant]
     Route: 048
     Dates: start: 20060822
  10. MELPERONE HYDROCHLORIDE [Concomitant]
     Route: 048
     Dates: start: 20060828
  11. ZANTAC [Concomitant]
     Route: 048
     Dates: start: 20060829
  12. RISPERDAL [Concomitant]
     Route: 048
     Dates: start: 20060830
  13. TRAZODONE HCL [Concomitant]
     Route: 048
     Dates: start: 20060830
  14. BEFACT [Concomitant]
     Route: 048
     Dates: start: 20060831

REACTIONS (8)
  - BRONCHOPNEUMONIA [None]
  - DRUG TOXICITY [None]
  - GASTROINTESTINAL MUCOSAL NECROSIS [None]
  - MUCOSAL INFLAMMATION [None]
  - MUSCLE RIGIDITY [None]
  - NECROSIS [None]
  - RESPIRATORY FAILURE [None]
  - TONGUE DISORDER [None]
